FAERS Safety Report 12876729 (Version 1)
Quarter: 2016Q4

REPORT INFORMATION
  Report Type: Spontaneous
  Country: US (occurrence: US)
  Receive Date: 20161021
  Receipt Date: 20161021
  Transmission Date: 20170207
  Serious: Yes (Hospitalization)
  Sender: FDA-Public Use
  Company Number: None

PATIENT
  Age: 24 Year
  Sex: Female

DRUGS (3)
  1. NEUPOGEN [Suspect]
     Active Substance: FILGRASTIM
     Indication: BONE CANCER
  2. NEUPOGEN [Suspect]
     Active Substance: FILGRASTIM
     Indication: PSORIATIC ARTHROPATHY
  3. NEUPOGEN [Suspect]
     Active Substance: FILGRASTIM
     Indication: ARTHROPATHY

REACTIONS (1)
  - Pyrexia [None]

NARRATIVE: CASE EVENT DATE: 20161021
